FAERS Safety Report 6247030-5 (Version None)
Quarter: 2009Q2

REPORT INFORMATION
  Report Type: 
  Country: None (occurrence: None)
  Receive Date: 20090624
  Receipt Date: 20090624
  Transmission Date: 20091009
  Serious: No
  Sender: FDA-Public Use
  Company Number: None

PATIENT
  Age: 34 Year
  Sex: Male
  Weight: 70 kg

DRUGS (2)
  1. INSULIN GLARGINE [Suspect]
     Indication: DIABETIC KETOACIDOSIS
     Dosage: 40 UNITS SQ X 1
     Route: 058
     Dates: start: 20090525
  2. RANITIDINE [Concomitant]

REACTIONS (4)
  - ANION GAP INCREASED [None]
  - BLOOD GLUCOSE DECREASED [None]
  - BLOOD GLUCOSE INCREASED [None]
  - BLOOD POTASSIUM INCREASED [None]
